FAERS Safety Report 11694453 (Version 5)
Quarter: 2015Q4

REPORT INFORMATION
  Report Type: Report from Study
  Country: GB (occurrence: GB)
  Receive Date: 20151103
  Receipt Date: 20151211
  Transmission Date: 20160304
  Serious: Yes (Hospitalization)
  Sender: FDA-Public Use
  Company Number: GB-JNJFOC-20151003398

PATIENT
  Age: 74 Year
  Sex: Female

DRUGS (5)
  1. IMBRUVICA [Suspect]
     Active Substance: IBRUTINIB
     Indication: MANTLE CELL LYMPHOMA
     Dosage: 4*140MG
     Route: 048
     Dates: start: 20150924
  2. BACLOFEN. [Concomitant]
     Active Substance: BACLOFEN
  3. STATINS [Concomitant]
     Active Substance: UNSPECIFIED INGREDIENT
  4. ENALAPRIL [Concomitant]
     Active Substance: ENALAPRIL
  5. TEMAZEPAM. [Concomitant]
     Active Substance: TEMAZEPAM

REACTIONS (6)
  - Hospitalisation [Not Recovered/Not Resolved]
  - Multiple system atrophy [Unknown]
  - Product physical issue [Unknown]
  - Product difficult to swallow [Unknown]
  - Lower respiratory tract infection [Unknown]
  - Rash [Not Recovered/Not Resolved]

NARRATIVE: CASE EVENT DATE: 20151025
